FAERS Safety Report 9392303 (Version 2)
Quarter: 2013Q3

REPORT INFORMATION
  Report Type: Spontaneous
  Country: RU (occurrence: RU)
  Receive Date: 20130710
  Receipt Date: 20130712
  Transmission Date: 20140515
  Serious: Yes (Hospitalization, Other)
  Sender: FDA-Public Use
  Company Number: RU-009507513-1307RUS002235

PATIENT
  Sex: Female

DRUGS (2)
  1. NUVARING [Suspect]
     Dosage: UNK
     Route: 067
     Dates: start: 20130417
  2. NUVARING [Suspect]
     Dosage: UNK
     Route: 067
     Dates: start: 20130514, end: 20130530

REACTIONS (3)
  - Ectopic pregnancy [Recovered/Resolved with Sequelae]
  - Abortion of ectopic pregnancy [Unknown]
  - Unintended pregnancy [Recovered/Resolved]
